FAERS Safety Report 24438735 (Version 1)
Quarter: 2024Q4

REPORT INFORMATION
  Report Type: Spontaneous
  Country: US (occurrence: US)
  Receive Date: 20241015
  Receipt Date: 20241015
  Transmission Date: 20250115
  Serious: Yes (Hospitalization)
  Sender: AMGEN
  Company Number: US-AMGEN-USASP2024200985

PATIENT

DRUGS (1)
  1. RITUXIMAB [Suspect]
     Active Substance: RITUXIMAB
     Indication: Thymic carcinoma
     Dosage: UNK
     Route: 065

REACTIONS (11)
  - Pneumonia serratia [Unknown]
  - Parvovirus infection [Unknown]
  - Pneumocystis jirovecii infection [Unknown]
  - Cellulitis [Unknown]
  - Pneumonia [Unknown]
  - Urinary tract infection [Unknown]
  - Sepsis [Unknown]
  - Fungal infection [Unknown]
  - Herpes simplex [Unknown]
  - Cytomegalovirus infection [Unknown]
  - Off label use [Unknown]
